FAERS Safety Report 13789251 (Version 2)
Quarter: 2017Q3

REPORT INFORMATION
  Report Type: Report from Study
  Country: US (occurrence: US)
  Receive Date: 20170725
  Receipt Date: 20170831
  Transmission Date: 20171127
  Serious: Yes (Hospitalization, Other)
  Sender: FDA-Public Use
  Company Number: US-GILEAD-2017-0284856

PATIENT
  Age: 51 Year
  Sex: Female

DRUGS (1)
  1. AMBRISENTAN [Suspect]
     Active Substance: AMBRISENTAN
     Indication: PRODUCT USED FOR UNKNOWN INDICATION
     Dosage: 5 MG, QD
     Route: 065
     Dates: start: 20170403

REACTIONS (4)
  - Sjogren^s syndrome [Not Recovered/Not Resolved]
  - Dermatomyositis [Not Recovered/Not Resolved]
  - Pneumonitis [Unknown]
  - Pulmonary fibrosis [Not Recovered/Not Resolved]
